FAERS Safety Report 8494098 (Version 3)
Quarter: 2012Q4

REPORT INFORMATION
  Report Type: 
  Country: US (occurrence: US)
  Receive Date: 20120404
  Receipt Date: 20120906
  Transmission Date: 20130627
  Serious: Yes (Hospitalization, Other)
  Sender: FDA-Public Use
  Company Number: US-ASTRAZENECA-2012SE20472

PATIENT
  Age: 88 Year
  Sex: Female

DRUGS (3)
  1. NEXIUM [Suspect]
     Route: 048
  2. SYMBICORT PMDI [Suspect]
     Route: 055
  3. RHINOCORT AQUA [Suspect]
     Route: 045

REACTIONS (4)
  - Fall [Unknown]
  - Loss of consciousness [Unknown]
  - Accident [Unknown]
  - Hypoacusis [Unknown]
